FAERS Safety Report 23473931 (Version 1)
Quarter: 2024Q1

REPORT INFORMATION
  Report Type: Spontaneous
  Country: US (occurrence: US)
  Receive Date: 20240203
  Receipt Date: 20240203
  Transmission Date: 20240410
  Serious: Yes (Hospitalization, Other)
  Sender: FDA-Public Use
  Company Number: US-SANDOZ-SDZ2024US009034

PATIENT
  Age: 49 Year
  Sex: Female

DRUGS (20)
  1. PENICILLIN V POTASSIUM [Suspect]
     Active Substance: PENICILLIN V POTASSIUM
     Indication: Product used for unknown indication
     Dosage: UNK
     Route: 065
  2. UNSPECIFIED INGREDIENT [Suspect]
     Active Substance: UNSPECIFIED INGREDIENT
     Indication: Product used for unknown indication
     Dosage: UNK
     Route: 065
  3. TRAMADOL HYDROCHLORIDE [Suspect]
     Active Substance: TRAMADOL HYDROCHLORIDE
     Indication: Product used for unknown indication
     Dosage: UNK
     Route: 065
  4. TORADOL [Suspect]
     Active Substance: KETOROLAC TROMETHAMINE
     Indication: Product used for unknown indication
     Dosage: UNK
     Route: 065
  5. ALBUTEROL\IPRATROPIUM [Concomitant]
     Active Substance: ALBUTEROL\IPRATROPIUM
     Indication: Product used for unknown indication
     Dosage: (2.5 MG BASE)/3ML NEBULIZING SOLN
     Route: 065
     Dates: start: 20231208
  6. MODERNA COVID-19 VACCINE [Concomitant]
     Active Substance: ELASOMERAN
     Indication: Product used for unknown indication
     Dosage: 0.25 ML
     Route: 065
     Dates: start: 20211117
  7. MODERNA COVID-19 VACCINE [Concomitant]
     Active Substance: ELASOMERAN
     Dosage: UNK
     Route: 065
     Dates: start: 20210330
  8. MODERNA COVID-19 VACCINE [Concomitant]
     Active Substance: ELASOMERAN
     Dosage: UNK
     Route: 065
     Dates: start: 20210427
  9. HUMAN PAPILLOMAVIRUS QUADRIVALENT (TYPES 6, 11, 16, AND 18) VACCINE, R [Concomitant]
     Active Substance: HUMAN PAPILLOMAVIRUS QUADRIVALENT (TYPES 6, 11, 16, AND 18) VACCINE, RECOMBINANT
     Indication: Product used for unknown indication
     Dosage: UNK
     Route: 065
     Dates: start: 20140416
  10. INFLUENZA VIRUS VACCINE [Concomitant]
     Active Substance: INFLUENZA VIRUS VACCINE
     Dosage: 0.5 ML
     Route: 030
     Dates: start: 20150929
  11. INFLUENZA VIRUS VACCINE [Concomitant]
     Active Substance: INFLUENZA VIRUS VACCINE
     Dosage: 0.7 ML
     Route: 030
     Dates: start: 20211123
  12. INFLUENZA VIRUS VACCINE [Concomitant]
     Active Substance: INFLUENZA VIRUS VACCINE
     Indication: Product used for unknown indication
     Dosage: 0.7 ML
     Route: 030
     Dates: start: 20231115
  13. PNEUMOCOCCAL VACCINE POLYVALENT [Concomitant]
     Active Substance: PNEUMOCOCCAL VACCINE POLYVALENT
     Indication: Product used for unknown indication
     Dosage: 0.5 ML
     Route: 030
     Dates: start: 20211123
  14. PNEUMOCOCCAL VACCINE POLYVALENT [Concomitant]
     Active Substance: PNEUMOCOCCAL VACCINE POLYVALENT
     Dosage: 0.5 ML
     Route: 030
     Dates: start: 20230418
  15. PNEUMOCOCCAL VACCINE POLYVALENT [Concomitant]
     Active Substance: PNEUMOCOCCAL VACCINE POLYVALENT
     Dosage: 0.5 ML
     Route: 030
     Dates: start: 20150710
  16. PNEUMOCOCCAL VACCINE POLYVALENT [Concomitant]
     Active Substance: PNEUMOCOCCAL VACCINE POLYVALENT
     Dosage: 0.5 ML
     Route: 030
     Dates: start: 20230418
  17. PNEUMOCOCCAL VACCINE POLYVALENT [Concomitant]
     Active Substance: PNEUMOCOCCAL VACCINE POLYVALENT
     Indication: Product used for unknown indication
     Dosage: UNK
     Route: 065
     Dates: start: 20130418
  18. REFRESH TEARS [Concomitant]
     Active Substance: CARBOXYMETHYLCELLULOSE SODIUM
     Indication: Product used for unknown indication
     Dosage: 1 TO 2 DROPS EACH EYE AS NEEDED
     Route: 047
     Dates: start: 20160319
  19. TETANUS TOXOID, REDUCED DIPHTHERIA TOXOID AND ACELLULAR PERTUSSIS VACC [Concomitant]
     Active Substance: TETANUS TOXOID, REDUCED DIPHTHERIA TOXOID AND ACELLULAR PERTUSSIS VACCINE ADSORBED, TDAP
     Indication: Product used for unknown indication
     Dosage: 0.5 ML
     Route: 030
     Dates: start: 20150929
  20. HUMAN VARICELLA-ZOSTER IMMUNE GLOBULIN [Concomitant]
     Active Substance: HUMAN VARICELLA-ZOSTER IMMUNE GLOBULIN
     Indication: Product used for unknown indication
     Dosage: 0.65 ML
     Route: 058
     Dates: start: 20180227

REACTIONS (62)
  - Acute kidney injury [Unknown]
  - Urinary retention [Unknown]
  - Cyclic vomiting syndrome [Unknown]
  - Mycobacterium abscessus infection [Unknown]
  - Polyarthritis [Unknown]
  - Pneumonia pseudomonal [Unknown]
  - Bronchiolitis [Unknown]
  - Pneumonia [Unknown]
  - Oral candidiasis [Unknown]
  - Colorectal adenoma [Unknown]
  - Premature menopause [Unknown]
  - Hyperproteinaemia [Unknown]
  - Anxiety disorder [Unknown]
  - Mixed anxiety and depressive disorder [Unknown]
  - Depression [Unknown]
  - Insomnia [Unknown]
  - Pain [Unknown]
  - Hypertension [Unknown]
  - Chronic sinusitis [Unknown]
  - Rhinitis allergic [Unknown]
  - Seasonal allergy [Unknown]
  - Asthma [Unknown]
  - Cough variant asthma [Unknown]
  - Gastrooesophageal reflux disease [Unknown]
  - Vomiting [Unknown]
  - Incisional hernia [Unknown]
  - Urinary tract infection [Unknown]
  - Haematuria [Unknown]
  - Dyspareunia [Unknown]
  - Menstrual disorder [Unknown]
  - Atrophic vulvovaginitis [Unknown]
  - Osteoarthritis [Unknown]
  - Osteoarthritis [Unknown]
  - Arthritis [Unknown]
  - Facet joint syndrome [Unknown]
  - Spinal osteoarthritis [Unknown]
  - Intervertebral disc degeneration [Unknown]
  - Intervertebral disc degeneration [Unknown]
  - Neck pain [Unknown]
  - Back pain [Unknown]
  - Lumbar radiculopathy [Unknown]
  - Back pain [Unknown]
  - Muscle spasms [Unknown]
  - Myalgia [Unknown]
  - Pain in extremity [Unknown]
  - Osteoporosis [Unknown]
  - Dizziness [Unknown]
  - Dyspnoea [Unknown]
  - Wheezing [Unknown]
  - Cough [Unknown]
  - Lung disorder [Unknown]
  - Mammogram abnormal [Unknown]
  - Blood thyroid stimulating hormone abnormal [Unknown]
  - Cervical dysplasia [Unknown]
  - Wound [Unknown]
  - Radiculopathy [Unknown]
  - Spinal osteoarthritis [Unknown]
  - Obesity [Unknown]
  - Arthralgia [Unknown]
  - Urticaria [Unknown]
  - Nausea [Unknown]
  - Chest pain [Unknown]

NARRATIVE: CASE EVENT DATE: 20060121
